FAERS Safety Report 8447790-9 (Version None)
Quarter: 2012Q2

REPORT INFORMATION
  Report Type: 
  Country: None (occurrence: None)
  Receive Date: 20120619
  Receipt Date: 20120618
  Transmission Date: 20120825
  Serious: Yes (Hospitalization)
  Sender: FDA-Public Use
  Company Number: JP-BRACCO-005990

PATIENT
  Age: 65 Year
  Sex: Female

DRUGS (1)
  1. IOPAMIDOL-370 [Suspect]
     Indication: COMPUTERISED TOMOGRAM ABDOMEN
     Route: 042
     Dates: start: 20120605, end: 20120605

REACTIONS (3)
  - HYPERTHERMIA [None]
  - THROMBOCYTOPENIA [None]
  - URTICARIA [None]
